FAERS Safety Report 7082622-5 (Version None)
Quarter: 2010Q4

REPORT INFORMATION
  Report Type: 
  Country: None (occurrence: None)
  Receive Date: 20101104
  Receipt Date: 20101026
  Transmission Date: 20110411
  Serious: Yes (Other)
  Sender: FDA-Public Use
  Company Number: JP-ASTRAZENECA-2010SE48814

PATIENT
  Age: 34 Year
  Sex: Female
  Weight: 51 kg

DRUGS (11)
  1. SYMBICORT [Suspect]
     Indication: ASTHMA
     Route: 055
  2. PAXIL [Concomitant]
     Indication: DEPRESSION
     Route: 048
     Dates: start: 20060623
  3. DORAL [Concomitant]
     Indication: INSOMNIA
     Route: 048
     Dates: start: 20060623
  4. TALION [Concomitant]
     Indication: RHINITIS ALLERGIC
     Route: 048
     Dates: start: 20060925
  5. ONON [Concomitant]
     Indication: RHINITIS ALLERGIC
     Route: 048
     Dates: start: 20060925
  6. CLARITHROMYCIN [Concomitant]
     Indication: CHRONIC SINUSITIS
     Route: 048
     Dates: start: 20070227
  7. METLIGINE [Concomitant]
     Indication: HYPOTENSION
     Route: 048
     Dates: start: 20090702
  8. MUCOSOLVAN [Concomitant]
     Indication: CHRONIC SINUSITIS
     Route: 048
     Dates: start: 20100916
  9. GENINAX [Concomitant]
     Indication: CHRONIC SINUSITIS
     Route: 048
     Dates: start: 20100916, end: 20100923
  10. MEPTIN AIR [Concomitant]
     Indication: ASTHMA
     Route: 055
     Dates: start: 20100916
  11. PREDNISOLONE [Concomitant]
     Indication: ASTHMA
     Route: 065
     Dates: start: 20100916, end: 20100923

REACTIONS (1)
  - ASTHMA [None]
